FAERS Safety Report 20611818 (Version 1)
Quarter: 2022Q1

REPORT INFORMATION
  Report Type: Spontaneous
  Country: CN (occurrence: CN)
  Receive Date: 20220318
  Receipt Date: 20220318
  Transmission Date: 20220423
  Serious: Yes (Hospitalization)
  Sender: FDA-Public Use
  Company Number: CN-BAYER-2022A039347

PATIENT
  Age: 36 Year
  Sex: Female

DRUGS (5)
  1. YASMIN [Suspect]
     Active Substance: DROSPIRENONE\ETHINYL ESTRADIOL
     Indication: Endometrial disorder
     Dosage: UNK
     Route: 048
     Dates: start: 20220216
  2. CLINDAMYCIN [Concomitant]
     Active Substance: CLINDAMYCIN
     Indication: Infection prophylaxis
     Dosage: UNK
     Route: 048
     Dates: start: 20220216
  3. OXYTOCIN [Concomitant]
     Active Substance: OXYTOCIN
     Indication: Haemostasis
  4. XIN SHENG HUA [Concomitant]
     Indication: Cardiovascular disorder
     Route: 048
  5. XIN SHENG HUA [Concomitant]
     Indication: Analgesic therapy

REACTIONS (5)
  - Deep vein thrombosis [None]
  - Uterine scar diverticulum [None]
  - Pain in extremity [None]
  - Off label use [None]
  - Contraindicated product administered [None]

NARRATIVE: CASE EVENT DATE: 20220201
